FAERS Safety Report 5103159-6 (Version None)
Quarter: 2006Q3

REPORT INFORMATION
  Report Type: 
  Country: None (occurrence: None)
  Receive Date: 20060911
  Receipt Date: 20060911
  Transmission Date: 20061208
  Serious: Yes (Other)
  Sender: FDA-Public Use
  Company Number: None

PATIENT
  Age: 37 Year
  Sex: Female
  Weight: 74.3899 kg

DRUGS (4)
  1. ROZEREM [Suspect]
     Indication: DEPRESSION
     Dosage: 8 MG PRN @ HS PO
     Route: 048
  2. ROZEREM [Suspect]
     Indication: SLEEP DISORDER
     Dosage: 8 MG PRN @ HS PO
     Route: 048
  3. ZOLOFT [Concomitant]
  4. PRILOSEC [Concomitant]

REACTIONS (1)
  - GALACTORRHOEA [None]
